FAERS Safety Report 23799172 (Version 1)
Quarter: 2024Q2

REPORT INFORMATION
  Report Type: Spontaneous
  Country: CN (occurrence: CN)
  Receive Date: 20240430
  Receipt Date: 20240430
  Transmission Date: 20240716
  Serious: Yes (Hospitalization, Other)
  Sender: FDA-Public Use
  Company Number: CN-Merck Healthcare KGaA-2024021708

PATIENT
  Age: 75 Year
  Sex: Male
  Weight: 63 kg

DRUGS (14)
  1. ERBITUX [Suspect]
     Active Substance: CETUXIMAB
     Indication: Gastrointestinal carcinoma
     Dosage: 800 MG, UNKNOWN
     Route: 041
     Dates: start: 20240313
  2. ERBITUX [Suspect]
     Active Substance: CETUXIMAB
     Dosage: 800 MG, UNKNOWN
     Route: 041
     Dates: start: 20240331, end: 20240331
  3. IRINOTECAN HYDROCHLORIDE [Suspect]
     Active Substance: IRINOTECAN HYDROCHLORIDE
     Indication: Gastrointestinal carcinoma
     Dosage: 280 MG, UNKNOWN
     Route: 042
     Dates: start: 20240313
  4. IRINOTECAN HYDROCHLORIDE [Suspect]
     Active Substance: IRINOTECAN HYDROCHLORIDE
     Dosage: UNK, UNKNOWN
     Route: 041
     Dates: start: 20240331, end: 20240331
  5. FLUOROURACIL [Suspect]
     Active Substance: FLUOROURACIL
     Indication: Gastrointestinal carcinoma
     Dosage: 0.625 G, UNKNOWN
     Route: 042
     Dates: start: 20240313
  6. FLUOROURACIL [Suspect]
     Active Substance: FLUOROURACIL
     Dosage: 4 G, UNKNOWN
     Route: 042
     Dates: start: 20240313
  7. FLUOROURACIL [Suspect]
     Active Substance: FLUOROURACIL
     Dosage: UNK, UNKNOWN
     Route: 041
     Dates: start: 20240331, end: 20240331
  8. FLUOROURACIL [Suspect]
     Active Substance: FLUOROURACIL
     Dosage: UNK, UNKNOWN
     Route: 041
     Dates: start: 20240331, end: 20240402
  9. LEUCOVORIN SODIUM [Concomitant]
     Active Substance: LEUCOVORIN SODIUM
     Indication: Gastrointestinal carcinoma
     Dosage: UNK, UNKNOWN
     Route: 041
     Dates: start: 20240331, end: 20240331
  10. SODIUM CHLORIDE [Concomitant]
     Active Substance: SODIUM CHLORIDE
     Indication: Medication dilution
     Dosage: UNK, UNKNOWN
     Route: 041
     Dates: start: 20240331, end: 20240331
  11. SODIUM CHLORIDE [Concomitant]
     Active Substance: SODIUM CHLORIDE
     Dosage: UNK, UNKNOWN
     Route: 042
     Dates: start: 20240331, end: 20240402
  12. SODIUM CHLORIDE [Concomitant]
     Active Substance: SODIUM CHLORIDE
     Dosage: UNK, UNKNOWN
     Route: 041
     Dates: start: 20240331, end: 20240331
  13. DEXTROSE [Concomitant]
     Active Substance: DEXTROSE\DEXTROSE MONOHYDRATE
     Indication: Medication dilution
     Dosage: UNK, UNKNOWN
     Route: 041
     Dates: start: 20240331, end: 20240331
  14. LEUCOVORIN CALCIUM [Concomitant]
     Active Substance: LEUCOVORIN CALCIUM
     Indication: Gastrointestinal carcinoma
     Dosage: 0.6 G, UNKNOWN
     Route: 042
     Dates: start: 20240313

REACTIONS (2)
  - White blood cell count decreased [Recovering/Resolving]
  - Neutrophil count decreased [Recovering/Resolving]

NARRATIVE: CASE EVENT DATE: 20240415
